FAERS Safety Report 9397400 (Version 3)
Quarter: 2013Q3

REPORT INFORMATION
  Report Type: Spontaneous
  Country: US (occurrence: None)
  Receive Date: 20130702
  Receipt Date: 20130905
  Transmission Date: 20140515
  Serious: Yes (Death, Hospitalization)
  Sender: FDA-Public Use
  Company Number: 2013036592

PATIENT
  Age: 33 Year
  Sex: Female
  Weight: 54 kg

DRUGS (1)
  1. PRIVIGEN [Suspect]
     Dosage: (2 GM/KG OVER 3 DAYS EVERY 4 WEEKS INTRAVENOUS (NOT OTHERWISE SPECIFIED))
     Route: 042
     Dates: start: 201307

REACTIONS (5)
  - Fall [None]
  - Hip fracture [None]
  - Haemorrhage [None]
  - Full blood count decreased [None]
  - Haemorrhage [None]
